FAERS Safety Report 14772961 (Version 1)
Quarter: 2018Q2

REPORT INFORMATION
  Report Type: Spontaneous
  Country: US (occurrence: US)
  Receive Date: 20180418
  Receipt Date: 20180418
  Transmission Date: 20180711
  Serious: Yes (Other)
  Sender: FDA-Public Use
  Company Number: US-TEVA-2018-US-863006

PATIENT
  Age: 52 Year
  Sex: Male

DRUGS (6)
  1. CHONDROITIN SULFATE, GLUCOSAMINE [Concomitant]
     Route: 065
  2. FISH OIL [Concomitant]
     Active Substance: FISH OIL
     Route: 065
  3. LEVOTHYROXINE SODIUM. [Concomitant]
     Active Substance: LEVOTHYROXINE SODIUM
     Route: 065
  4. OMEPRAZOLE. [Concomitant]
     Active Substance: OMEPRAZOLE
     Route: 065
  5. DESVENLAFAXINE. [Suspect]
     Active Substance: DESVENLAFAXINE
     Indication: MAJOR DEPRESSION
     Dosage: 50MG DAILY INITIALLY
     Route: 048
  6. DESVENLAFAXINE. [Suspect]
     Active Substance: DESVENLAFAXINE
     Indication: MAJOR DEPRESSION
     Dosage: 100MG DAILY SIX MONTHS BEFORE THE PRESENTATION
     Route: 048

REACTIONS (1)
  - Interstitial lung disease [Recovering/Resolving]
